FAERS Safety Report 4283688-8 (Version None)
Quarter: 2004Q1

REPORT INFORMATION
  Report Type: 
  Country: None (occurrence: None)
  Receive Date: 20040202
  Receipt Date: 20040126
  Transmission Date: 20041129
  Serious: Yes (Life-Threatening, Hospitalization)
  Sender: FDA-Public Use
  Company Number: PHBS2004JP01265

PATIENT
  Age: 90 Year
  Sex: Female

DRUGS (14)
  1. FASTIC #AJ [Suspect]
     Indication: HYPERGLYCAEMIA
     Dosage: 135 MG/DAY
     Route: 048
     Dates: start: 20020922, end: 20020923
  2. ROCEPHIN [Concomitant]
     Indication: PNEUMONIA
     Dosage: 1 G, UNK
     Dates: start: 20020918, end: 20020926
  3. CRAVIT [Concomitant]
     Indication: PNEUMONIA
     Dates: start: 20020918, end: 20020924
  4. ALFAROL [Concomitant]
  5. ACECOL [Concomitant]
  6. RANITIDINE HYDROCHLORIDE [Concomitant]
  7. BIOFERMIN [Concomitant]
  8. NEUQUINON [Concomitant]
  9. MESADORIN S [Concomitant]
  10. MUCODYNE [Concomitant]
  11. ALDACTONE [Concomitant]
  12. LASIX [Concomitant]
  13. FLUITRAN [Concomitant]
  14. GRAMALIL [Concomitant]

REACTIONS (4)
  - ANURIA [None]
  - CONVULSION [None]
  - HYPOGLYCAEMIA [None]
  - MENTAL STATUS CHANGES [None]
